FAERS Safety Report 17242270 (Version 1)
Quarter: 2020Q1

REPORT INFORMATION
  Report Type: Spontaneous
  Country: US (occurrence: US)
  Receive Date: 20200106
  Receipt Date: 20200106
  Transmission Date: 20200409
  Serious: Yes (Disabling)
  Sender: FDA-Public Use
  Company Number: None

PATIENT
  Age: 70 Year
  Sex: Female
  Weight: 63 kg

DRUGS (10)
  1. VITAMIN K [Concomitant]
     Active Substance: PHYTONADIONE
  2. NP THYROID [Concomitant]
     Active Substance: LEVOTHYROXINE\LIOTHYRONINE
  3. IODINE. [Concomitant]
     Active Substance: IODINE
  4. BIOTIN [Concomitant]
     Active Substance: BIOTIN
  5. COENZYME Q-10 [Concomitant]
  6. BUPROPION 100MG [Suspect]
     Active Substance: BUPROPION
     Indication: DEPRESSION
     Dosage: ?          QUANTITY:180 TABLET(S);?
     Route: 048
     Dates: start: 20191124, end: 20191228
  7. B VITAMINS [Concomitant]
     Active Substance: CYANOCOBALAMIN\DEXPANTHENOL\NIACINAMIDE\PYRIDOXINE HYDROCHLORIDE\RIBOFLAVIN 5^-PHOSPHATE SODIUM\THIAMINE HYDROCHLORIDE\VITAMIN B COMPLEX
  8. VIT A [Concomitant]
  9. VIT D [Concomitant]
     Active Substance: VITAMIN D NOS
  10. MAGNESIUM [Concomitant]
     Active Substance: MAGNESIUM

REACTIONS (2)
  - Product quality issue [None]
  - Depression [None]

NARRATIVE: CASE EVENT DATE: 20191216
